FAERS Safety Report 5482634-9 (Version None)
Quarter: 2007Q4

REPORT INFORMATION
  Report Type: 
  Country: None (occurrence: None)
  Receive Date: 20071011
  Receipt Date: 20071008
  Transmission Date: 20080405
  Serious: No
  Sender: FDA-Public Use
  Company Number: A0677010A

PATIENT
  Age: 79 Year
  Sex: Female
  Weight: 65.9 kg

DRUGS (12)
  1. TYKERB [Suspect]
     Indication: BREAST CANCER
     Dosage: 1250MG PER DAY
     Route: 048
     Dates: start: 20070823
  2. XELODA [Suspect]
     Indication: BREAST CANCER
     Dosage: 500MG TWICE PER DAY
     Route: 048
     Dates: start: 20070823
  3. ZESTRIL [Concomitant]
  4. COREG [Concomitant]
  5. LEVOTHYROXINE SODIUM [Concomitant]
  6. LOMOTIL [Concomitant]
  7. LASIX [Concomitant]
  8. MAGNESIUM SULFATE [Concomitant]
  9. POTASSIUM CHLORIDE [Concomitant]
  10. SYNTHROID [Concomitant]
  11. ZYRTEC [Concomitant]
  12. OXYGEN [Concomitant]

REACTIONS (5)
  - ARTHRALGIA [None]
  - BACK PAIN [None]
  - CARDIAC MURMUR [None]
  - DIARRHOEA [None]
  - WEIGHT INCREASED [None]
